FAERS Safety Report 25236136 (Version 1)
Quarter: 2025Q2

REPORT INFORMATION
  Report Type: Spontaneous
  Country: JP (occurrence: JP)
  Receive Date: 20250424
  Receipt Date: 20250424
  Transmission Date: 20250716
  Serious: Yes (Other)
  Sender: ALEXION PHARMACEUTICALS
  Company Number: JP-ASTRAZENECA-250038415_032620_P_1

PATIENT
  Age: 69 Year

DRUGS (2)
  1. FASENRA [Suspect]
     Active Substance: BENRALIZUMAB
     Indication: Asthma
  2. PREDNISOLONE [Concomitant]
     Active Substance: PREDNISOLONE
     Dosage: 4 MILLIGRAM, QD (NUMBER OF SEPARATE DOSAGES UNKNOWN)
     Route: 065

REACTIONS (1)
  - Eosinophilic granulomatosis with polyangiitis [Unknown]
